FAERS Safety Report 8113653 (Version 4)
Quarter: 2013Q4

REPORT INFORMATION
  Report Type: Spontaneous
  Country: JP (occurrence: JP)
  Receive Date: 20110830
  Receipt Date: 20131001
  Transmission Date: 20140711
  Serious: Yes (Other)
  Sender: FDA-Public Use
  Company Number: JP-B.I. PHARMACEUTICALS,INC./RIDGEFIELD-2011-BP-20798NB

PATIENT
  Age: 86 Year
  Sex: Male
  Weight: 48 kg

DRUGS (6)
  1. PRAZAXA [Suspect]
     Indication: ATRIAL FIBRILLATION
     Dosage: 220 MG
     Route: 048
     Dates: start: 20110702
  2. PRAZAXA [Suspect]
     Dosage: 150 MG
     Route: 048
     Dates: start: 20110802
  3. CLARITH [Suspect]
     Route: 048
  4. THYRADIN S [Concomitant]
     Route: 048
  5. MYSLEE [Concomitant]
     Route: 048
  6. SPIRIVA [Concomitant]
     Route: 065

REACTIONS (3)
  - Cerebral infarction [Unknown]
  - Epistaxis [Recovered/Resolved]
  - Haemorrhage subcutaneous [Recovered/Resolved]
